FAERS Safety Report 7765446-2 (Version None)
Quarter: 2011Q3

REPORT INFORMATION
  Report Type: 
  Country: None (occurrence: None)
  Receive Date: 20110906
  Receipt Date: 20110531
  Transmission Date: 20111222
  Serious: No
  Sender: FDA-Public Use
  Company Number: 201104070

PATIENT
  Age: 45 Year
  Sex: Female

DRUGS (2)
  1. PROGESTERONE CREAM (PROGESTERONE) [Concomitant]
  2. XIAFLEX [Suspect]
     Indication: DUPUYTREN'S CONTRACTURE
     Dosage: 1 IN 1 D, INTRALESIONAL
     Route: 026
     Dates: start: 20101114, end: 20101114

REACTIONS (6)
  - NEURALGIA [None]
  - CONTUSION [None]
  - JOINT RANGE OF MOTION DECREASED [None]
  - MUSCULOSKELETAL STIFFNESS [None]
  - DISEASE PROGRESSION [None]
  - OEDEMA PERIPHERAL [None]
